FAERS Safety Report 6670283-6 (Version None)
Quarter: 2010Q2

REPORT INFORMATION
  Report Type: 
  Country: None (occurrence: None)
  Receive Date: 20100405
  Receipt Date: 20100319
  Transmission Date: 20101027
  Serious: Yes (Hospitalization)
  Sender: FDA-Public Use
  Company Number: 013-20484-08101786

PATIENT
  Age: 38 Year
  Sex: Female
  Weight: 60 kg

DRUGS (2)
  1. INNOHEP [Suspect]
     Indication: DEEP VEIN THROMBOSIS
     Dosage: (10000 IU, 1 IN 1 D), SUBCUTANEOUS
     Route: 058
     Dates: start: 20070423, end: 20070801
  2. OMNIBIONTA (AMINOBENZOIC ACID, VITAMINS NOS, MINERALS NOS) [Concomitant]

REACTIONS (4)
  - CAESAREAN SECTION [None]
  - DRUG EXPOSURE DURING PREGNANCY [None]
  - POSTPARTUM HAEMORRHAGE [None]
  - UTERINE HAEMATOMA [None]
